FAERS Safety Report 15712518 (Version 3)
Quarter: 2020Q1

REPORT INFORMATION
  Report Type: Report from Study
  Country: None (occurrence: US)
  Receive Date: 20181212
  Receipt Date: 20200206
  Transmission Date: 20200409
  Serious: Yes (Hospitalization, Other)
  Sender: FDA-Public Use
  Company Number: US-ABBVIE-18K-163-2489537-00

PATIENT
  Sex: Female
  Weight: 98.06 kg

DRUGS (3)
  1. BUPROPION. [Concomitant]
     Active Substance: BUPROPION
     Indication: PRODUCT USED FOR UNKNOWN INDICATION
     Route: 065
  2. HUMIRA [Suspect]
     Active Substance: ADALIMUMAB
     Indication: HIDRADENITIS
     Route: 058
     Dates: start: 2016, end: 2018
  3. HUMIRA [Suspect]
     Active Substance: ADALIMUMAB
     Route: 058
     Dates: start: 201808

REACTIONS (5)
  - Hidradenitis [Unknown]
  - Surgery [Unknown]
  - Abscess intestinal [Unknown]
  - Intestinal perforation [Unknown]
  - Diverticulitis [Unknown]

NARRATIVE: CASE EVENT DATE: 2018
